FAERS Safety Report 5468661-6 (Version None)
Quarter: 2007Q3

REPORT INFORMATION
  Report Type: 
  Country: None (occurrence: None)
  Receive Date: 20070921
  Receipt Date: 20070906
  Transmission Date: 20080115
  Serious: Yes (Hospitalization)
  Sender: FDA-Public Use
  Company Number: S07-FRA-05058-01

PATIENT
  Age: 79 Year
  Sex: Male

DRUGS (5)
  1. MEMANTINE HCL [Suspect]
     Dosage: 10 MG QD PO
     Route: 048
     Dates: end: 20070814
  2. VALSARTAN AND HYDROCHLOROTHIAZIDE [Suspect]
     Dosage: 80 MG QD PO
     Route: 048
     Dates: end: 20070814
  3. ARICEPT [Suspect]
     Dosage: 10 MG QD PO
     Route: 048
     Dates: end: 20070814
  4. DEROXAT  (PAROXETINE HYDROCHLORIDE) [Suspect]
     Dosage: 10 MG QD PO
     Route: 048
     Dates: end: 20070814
  5. RISPERDAL [Concomitant]

REACTIONS (6)
  - BLOOD GLUCOSE INCREASED [None]
  - BLOOD SODIUM INCREASED [None]
  - DEHYDRATION [None]
  - LUNG INFECTION [None]
  - RENAL FAILURE ACUTE [None]
  - SOMNOLENCE [None]
